FAERS Safety Report 13237201 (Version 2)
Quarter: 2017Q1

REPORT INFORMATION
  Report Type: Spontaneous
  Country: IT (occurrence: IT)
  Receive Date: 20170215
  Receipt Date: 20170221
  Transmission Date: 20170428
  Serious: Yes (Hospitalization, Other)
  Sender: FDA-Public Use
  Company Number: IT-PFIZER INC-2017062555

PATIENT
  Age: 41 Year
  Sex: Female
  Weight: 55 kg

DRUGS (7)
  1. NICOZID [Suspect]
     Active Substance: ISONIAZID
     Indication: TUBERCULOSIS GASTROINTESTINAL
     Dosage: 300 MG, DAILY
     Route: 048
     Dates: start: 20100413, end: 20100426
  2. ETAPIAM [Suspect]
     Active Substance: ETHAMBUTOL HYDROCHLORIDE
     Indication: TUBERCULOSIS GASTROINTESTINAL
     Dosage: 1200 MG, DAILY
     Route: 048
     Dates: start: 20100413, end: 20100426
  3. TRUVADA [Concomitant]
     Active Substance: EMTRICITABINE\TENOFOVIR DISOPROXIL FUMARATE
     Indication: ANTIRETROVIRAL THERAPY
     Dosage: 1 DF, UNK
     Route: 048
     Dates: start: 20100413, end: 20100426
  4. MYCOBUTIN [Suspect]
     Active Substance: RIFABUTIN
     Indication: TUBERCULOSIS GASTROINTESTINAL
     Dosage: 150 MG, DAILY
     Route: 048
     Dates: start: 20100413, end: 20100426
  5. PIRALDINA [Suspect]
     Active Substance: PYRAZINAMIDE
     Indication: TUBERCULOSIS GASTROINTESTINAL
     Dosage: 1500 MG DAILY
     Route: 048
     Dates: start: 20100413, end: 20100426
  6. KALETRA [Concomitant]
     Active Substance: LOPINAVIR\RITONAVIR
     Indication: ANTIRETROVIRAL THERAPY
     Dosage: 2 DF
     Route: 048
     Dates: start: 20100413, end: 20100426
  7. BENADON [Concomitant]
     Active Substance: PYRIDOXINE HYDROCHLORIDE
     Dosage: 300 MG, UNK
     Route: 048
     Dates: start: 20100413, end: 20100426

REACTIONS (2)
  - Leukopenia [Recovered/Resolved]
  - Hepatotoxicity [Recovered/Resolved]

NARRATIVE: CASE EVENT DATE: 20100426
